FAERS Safety Report 10528068 (Version 19)
Quarter: 2016Q4

REPORT INFORMATION
  Report Type: Spontaneous
  Country: US (occurrence: US)
  Receive Date: 20141020
  Receipt Date: 20161219
  Transmission Date: 20170206
  Serious: Yes (Death, Hospitalization)
  Sender: FDA-Public Use
  Company Number: US-ACTELION-A-US2014-105567

PATIENT
  Age: 74 Year
  Sex: Male

DRUGS (2)
  1. OPSUMIT [Suspect]
     Active Substance: MACITENTAN
     Indication: PULMONARY ARTERIAL HYPERTENSION
     Dosage: 10 MG, QD
     Route: 048
     Dates: start: 20140925
  2. ADEMPAS [Concomitant]
     Active Substance: RIOCIGUAT

REACTIONS (26)
  - Gastrointestinal disorder [Unknown]
  - Infusion site cellulitis [Unknown]
  - Chronic obstructive pulmonary disease [Unknown]
  - Fatigue [Unknown]
  - Fluid retention [Unknown]
  - Pyrexia [Unknown]
  - Dyspnoea [Unknown]
  - Atrial fibrillation [Unknown]
  - Peripheral swelling [Unknown]
  - Nausea [Unknown]
  - Oedema [Unknown]
  - Internal haemorrhage [Unknown]
  - Transfusion [Unknown]
  - Nasopharyngitis [Unknown]
  - Sepsis [Unknown]
  - Retching [Unknown]
  - Blood count abnormal [Unknown]
  - Gastrointestinal haemorrhage [Unknown]
  - Arteriovenous malformation [Unknown]
  - Pulmonary oedema [Unknown]
  - Dyspnoea [Unknown]
  - Pallor [Unknown]
  - Death [Fatal]
  - Asthenia [Unknown]
  - Right ventricular failure [Unknown]
  - Weight increased [Unknown]

NARRATIVE: CASE EVENT DATE: 20141001
